FAERS Safety Report 6263993-6 (Version None)
Quarter: 2009Q3

REPORT INFORMATION
  Report Type: 
  Country: None (occurrence: None)
  Receive Date: 20090710
  Receipt Date: 20090626
  Transmission Date: 20100115
  Serious: Yes (Hospitalization)
  Sender: FDA-Public Use
  Company Number: US-RB-017816-09

PATIENT
  Age: 66 Year
  Sex: Female

DRUGS (16)
  1. MUCINEX DM [Suspect]
     Route: 048
  2. ADVAIR HFA [Concomitant]
  3. OXYCODONE [Concomitant]
  4. DOCUSATE [Concomitant]
  5. LEVAQUIN [Concomitant]
  6. ZOLOFT [Concomitant]
  7. TOPROL-XL [Concomitant]
  8. NORVASC [Concomitant]
  9. TERAZOSIN HCL [Concomitant]
  10. AMITRIPTYLINE HCL [Concomitant]
  11. MECLIZINE [Concomitant]
  12. KLONOPIN [Concomitant]
  13. FLONASE [Concomitant]
  14. ZOCOR [Concomitant]
  15. METFORMIN HCL [Concomitant]
  16. COMBIVENT [Concomitant]

REACTIONS (3)
  - HAEMATURIA [None]
  - NEPHROLITHIASIS [None]
  - PAIN [None]
